FAERS Safety Report 4494970-3 (Version None)
Quarter: 2004Q4

REPORT INFORMATION
  Report Type: 
  Country: None (occurrence: None)
  Receive Date: 20041103
  Receipt Date: 20041018
  Transmission Date: 20050328
  Serious: Yes (Death)
  Sender: FDA-Public Use
  Company Number: 2004-BP-10339RO

PATIENT
  Age: 44 Year

DRUGS (3)
  1. ALPRAZOLAM [Suspect]
  2. BUPROPION (BUPROPION) [Suspect]
  3. CLONAZEPAM [Suspect]

REACTIONS (1)
  - MULTIPLE DRUG OVERDOSE [None]
